FAERS Safety Report 24063665 (Version 3)
Quarter: 2025Q4

REPORT INFORMATION
  Report Type: Report from Study
  Country: KR (occurrence: KR)
  Receive Date: 20240709
  Receipt Date: 20251006
  Transmission Date: 20260117
  Serious: Yes (Hospitalization, Other)
  Sender: TAKEDA
  Company Number: KR-TAKEDA-2024TUS067418

PATIENT
  Age: 74 Year
  Sex: Female
  Weight: 47 kg

DRUGS (42)
  1. VEDOLIZUMAB [Suspect]
     Active Substance: VEDOLIZUMAB
     Indication: Colitis ulcerative
     Dosage: 300 MILLIGRAM
  2. Kanarb [Concomitant]
     Indication: Hypertension
     Dosage: 60 MILLIGRAM, QD
     Dates: start: 20200611
  3. AXID [Concomitant]
     Active Substance: NIZATIDINE
     Indication: Gastroenteritis
     Dosage: 150 MILLIGRAM, BID
     Dates: start: 20220125, end: 20220408
  4. METOCLOPRAMIDE HYDROCHLORIDE [Concomitant]
     Active Substance: METOCLOPRAMIDE HYDROCHLORIDE
     Indication: Gastroenteritis
     Dosage: 10 MILLIGRAM, QD
     Dates: start: 20220212, end: 20220212
  5. NORVASC [Concomitant]
     Active Substance: AMLODIPINE BESYLATE
     Indication: Hypertension
     Dosage: 10 MILLIGRAM
     Dates: start: 20220209, end: 20220212
  6. Konil [Concomitant]
     Indication: Hypertension
     Dosage: 4 MILLIGRAM, QD
     Dates: start: 20220228, end: 20220819
  7. Konil [Concomitant]
     Dosage: 4 MILLIGRAM, QD
     Dates: start: 20220820
  8. SMOFLIPID [Concomitant]
     Active Substance: FISH OIL\MEDIUM-CHAIN TRIGLYCERIDES\OLIVE OIL\SOYBEAN OIL
     Indication: Prophylaxis
     Dosage: 250 MILLILITER, QD
     Dates: start: 20220228, end: 20220228
  9. XANAX [Concomitant]
     Active Substance: ALPRAZOLAM
     Indication: Adjustment disorder with anxiety
     Dosage: 0.25 MILLIGRAM, QD
     Dates: start: 20220411
  10. XANAX [Concomitant]
     Active Substance: ALPRAZOLAM
     Dosage: 0.125 MILLIGRAM, QD
     Dates: start: 20220411
  11. TEGOPRAZAN [Concomitant]
     Active Substance: TEGOPRAZAN
     Indication: Prophylaxis
     Dosage: 50 MILLIGRAM
  12. Trestan [Concomitant]
     Indication: Decreased appetite
     Dosage: UNK
  13. Azabio [Concomitant]
     Dosage: 25 MILLIGRAM, QD
     Dates: start: 20220521
  14. Alverix [Concomitant]
     Dosage: UNK
  15. PENTASA [Concomitant]
     Active Substance: MESALAMINE
     Dosage: 1 GRAM, QD
     Dates: start: 20170613
  16. PENTASA [Concomitant]
     Active Substance: MESALAMINE
     Dosage: 1 GRAM, BID
     Dates: start: 20200609
  17. Polybutine [Concomitant]
     Indication: Melaena
     Dosage: 300 MILLIGRAM, BID
     Dates: start: 20180320
  18. Polybutine [Concomitant]
     Dosage: 300 MILLIGRAM, BID
     Dates: start: 20220318, end: 20220324
  19. COLAZAL [Concomitant]
     Active Substance: BALSALAZIDE DISODIUM
     Dosage: 750 MILLIGRAM, BID
     Dates: start: 20180710
  20. VITAMINS [Concomitant]
     Active Substance: VITAMINS
     Indication: Vitamin supplementation
     Dosage: 5 MILLILITER, QD
     Dates: start: 20220228, end: 20220228
  21. VITAMINS [Concomitant]
     Active Substance: VITAMINS
     Indication: Malnutrition
     Dosage: 5 MILLILITER, QD
     Dates: start: 20220323, end: 20220327
  22. VITAMINS [Concomitant]
     Active Substance: VITAMINS
     Dosage: 5 MILLILITER, QD
     Dates: start: 20220408, end: 20220417
  23. Furtman [Concomitant]
     Indication: Melaena
     Dosage: 0.2 MILLILITER, QD
     Dates: start: 20220318, end: 20220327
  24. Furtman [Concomitant]
     Dosage: 0.2 MILLILITER, QD
     Dates: start: 20220408, end: 20220417
  25. Combiflex peri [Concomitant]
     Indication: Melaena
     Dosage: 1100 MILLILITER, QD
     Dates: start: 20220318, end: 20220327
  26. ULTRACET [Concomitant]
     Active Substance: ACETAMINOPHEN\TRAMADOL HYDROCHLORIDE
     Indication: Melaena
     Dosage: UNK UNK, BID
     Dates: start: 20220318, end: 20220327
  27. LOPERAMIDE [Concomitant]
     Active Substance: LOPERAMIDE
     Indication: Melaena
     Dosage: 2 MILLIGRAM, BID
     Dates: start: 20220321, end: 20220327
  28. Norzyme [Concomitant]
     Indication: Melaena
     Dosage: 457.7 MILLIGRAM, QD
     Dates: start: 20220322, end: 20220322
  29. Phosten [Concomitant]
     Indication: Electrolyte substitution therapy
     Dosage: 20 MILLILITER, QD
     Dates: start: 20220324, end: 20220324
  30. AMINO ACIDS\DEXTROSE\ELECTROLYTES NOS\SOYBEAN OIL\VITAMINS [Concomitant]
     Active Substance: AMINO ACIDS\DEXTROSE\ELECTROLYTES NOS\SOYBEAN OIL\VITAMINS
     Indication: Melaena
     Dosage: 1085 MILLILITER, QD
     Dates: start: 20220408, end: 20220417
  31. .ALPHA.-TOCOPHEROL ACETATE\ALLANTOIN\LIDOCAINE\PREDNISOLONE [Concomitant]
     Active Substance: .ALPHA.-TOCOPHEROL ACETATE\ALLANTOIN\LIDOCAINE\PREDNISOLONE
     Dosage: 2 GRAM, QD
     Dates: start: 20220318, end: 20220318
  32. Solondo [Concomitant]
     Dosage: 30 MILLIGRAM, QD
     Dates: start: 20220322, end: 20220328
  33. Solondo [Concomitant]
     Dosage: 27.5 MILLIGRAM, QD
     Dates: start: 20220329, end: 20220404
  34. Solondo [Concomitant]
     Dosage: 25 MILLIGRAM, QD
     Dates: start: 20220405, end: 20220411
  35. Solondo [Concomitant]
     Dosage: 22.5 MILLIGRAM, QD
     Dates: start: 20220412, end: 20220418
  36. Solondo [Concomitant]
     Dosage: 20 MILLIGRAM, QD
     Dates: start: 20220419, end: 20220425
  37. Solondo [Concomitant]
     Dosage: 17.5 MILLIGRAM, QD
     Dates: start: 20220426, end: 20220502
  38. Solondo [Concomitant]
     Dosage: 15 MILLIGRAM, QD
     Dates: start: 20220503, end: 20220510
  39. Solondo [Concomitant]
     Dosage: 12.5 MILLIGRAM, QD
     Dates: start: 20220511, end: 20220518
  40. Solondo [Concomitant]
     Dosage: 10 MILLIGRAM, QD
     Dates: start: 20220519, end: 20220526
  41. TYLENOL [Concomitant]
     Active Substance: ACETAMINOPHEN
     Dosage: 650 MILLIGRAM, QD
     Dates: start: 20220411, end: 20220416
  42. Purinetone [Concomitant]
     Dosage: 25 MILLIGRAM, QD
     Dates: start: 20220413, end: 20220520

REACTIONS (4)
  - Melaena [Recovered/Resolved]
  - Adjustment disorder with anxiety [Recovering/Resolving]
  - Decreased appetite [Recovering/Resolving]
  - Asthenia [Recovered/Resolved]

NARRATIVE: CASE EVENT DATE: 20220318
